FAERS Safety Report 14477503 (Version 1)
Quarter: 2018Q1

REPORT INFORMATION
  Report Type: Report from Study
  Country: US (occurrence: US)
  Receive Date: 20180201
  Receipt Date: 20180201
  Transmission Date: 20180509
  Serious: No
  Sender: FDA-Public Use
  Company Number: US-EXELIXIS-CABO-17011162

PATIENT
  Age: 57 Year
  Sex: Male

DRUGS (10)
  1. VALSARTAN. [Concomitant]
     Active Substance: VALSARTAN
  2. MONTELUKAST [Concomitant]
     Active Substance: MONTELUKAST SODIUM
  3. FLUTICASONE. [Concomitant]
     Active Substance: FLUTICASONE
  4. VITA PLUS C [Concomitant]
  5. VITAMIN D3 [Concomitant]
     Active Substance: CHOLECALCIFEROL
  6. TELOTRISTAT ETHYL [Concomitant]
     Active Substance: TELOTRISTAT ETHYL
  7. BISOPROLOL [Concomitant]
     Active Substance: BISOPROLOL
  8. GLUCOSAMINE [Concomitant]
     Active Substance: GLUCOSAMINE
  9. CENTRUM [Concomitant]
     Active Substance: VITAMINS
  10. CABOMETYX [Suspect]
     Active Substance: CABOZANTINIB S-MALATE
     Indication: RENAL CANCER
     Dosage: 60 MG, QD
     Route: 048
     Dates: start: 20170909

REACTIONS (2)
  - Hypoaesthesia [Unknown]
  - Dry skin [Unknown]

NARRATIVE: CASE EVENT DATE: 201710
